FAERS Safety Report 12749585 (Version 2)
Quarter: 2017Q3

REPORT INFORMATION
  Report Type: Spontaneous
  Country: US (occurrence: US)
  Receive Date: 20160915
  Receipt Date: 20170914
  Transmission Date: 20171127
  Serious: No
  Sender: FDA-Public Use
  Company Number: US-ASTELLAS-2016US016481

PATIENT
  Sex: Male

DRUGS (4)
  1. ZOMETA [Concomitant]
     Active Substance: ZOLEDRONIC ACID
     Indication: PRODUCT USED FOR UNKNOWN INDICATION
     Dosage: UNK UNK, UNKNOWN FREQ.
     Route: 065
  2. XTANDI [Suspect]
     Active Substance: ENZALUTAMIDE
     Indication: PROSTATE CANCER
     Route: 048
     Dates: start: 20160301
  3. XTANDI [Suspect]
     Active Substance: ENZALUTAMIDE
     Dosage: 160 MG, ONCE DAILY (4 CAPSULES)
     Route: 048
     Dates: start: 20161223
  4. ZOLOFT [Concomitant]
     Active Substance: SERTRALINE HYDROCHLORIDE
     Indication: PRODUCT USED FOR UNKNOWN INDICATION
     Dosage: UNK UNK, UNKNOWN FREQ.
     Route: 065

REACTIONS (10)
  - Gait disturbance [Unknown]
  - Back pain [Unknown]
  - Epistaxis [Unknown]
  - Confusional state [Unknown]
  - Decreased activity [Unknown]
  - Asthenia [Unknown]
  - Depression [Unknown]
  - Dizziness [Unknown]
  - Diarrhoea [Unknown]
  - Fatigue [Unknown]
